FAERS Safety Report 6510610-3 (Version None)
Quarter: 2009Q4

REPORT INFORMATION
  Report Type: 
  Country: None (occurrence: None)
  Receive Date: 20091222
  Receipt Date: 20091105
  Transmission Date: 20100525
  Serious: No
  Sender: FDA-Public Use
  Company Number: US-ASTRAZENECA-2009SE24645

PATIENT
  Sex: Female
  Weight: 85.7 kg

DRUGS (6)
  1. CRESTOR [Suspect]
     Route: 048
  2. LASIX [Concomitant]
  3. BENICAR [Concomitant]
  4. NEXIUM [Concomitant]
  5. PENTOXIFYLLINE [Concomitant]
  6. ASPIRIN [Concomitant]

REACTIONS (2)
  - CONTUSION [None]
  - EAR PAIN [None]
